FAERS Safety Report 5247386-6 (Version None)
Quarter: 2007Q1

REPORT INFORMATION
  Report Type: 
  Country: None (occurrence: None)
  Receive Date: 20070223
  Receipt Date: 20070223
  Transmission Date: 20070707
  Serious: Yes (Hospitalization)
  Sender: FDA-Public Use
  Company Number: None

PATIENT
  Sex: Male
  Weight: 110 kg

DRUGS (1)
  1. CAMPATH [Suspect]
     Dosage: 90 MG

REACTIONS (4)
  - ANAEMIA [None]
  - BACTERAEMIA [None]
  - CYTOMEGALOVIRUS INFECTION [None]
  - DEHYDRATION [None]
